FAERS Safety Report 19276437 (Version 1)
Quarter: 2021Q2

REPORT INFORMATION
  Report Type: Spontaneous
  Country: GB (occurrence: GB)
  Receive Date: 20210519
  Receipt Date: 20210519
  Transmission Date: 20210717
  Serious: Yes (Disabling)
  Sender: FDA-Public Use
  Company Number: NVSC2021GB108819

PATIENT
  Age: 22 Year
  Weight: 57 kg

DRUGS (1)
  1. METHYLPHENIDATE HYDROCHLORIDE. [Suspect]
     Active Substance: METHYLPHENIDATE HYDROCHLORIDE
     Indication: ATTENTION DEFICIT HYPERACTIVITY DISORDER
     Dosage: 10 MG
     Route: 048
     Dates: start: 20210424, end: 20210504

REACTIONS (5)
  - Anxiety [Recovered/Resolved]
  - Feeling jittery [Recovered/Resolved]
  - Irritability [Recovered/Resolved]
  - Mania [Recovered/Resolved]
  - Depression [Recovered/Resolved]

NARRATIVE: CASE EVENT DATE: 20210424
